FAERS Safety Report 6597069-5 (Version None)
Quarter: 2010Q1

REPORT INFORMATION
  Report Type: 
  Country: None (occurrence: None)
  Receive Date: 20100223
  Receipt Date: 20100215
  Transmission Date: 20100710
  Serious: Yes (Hospitalization)
  Sender: FDA-Public Use
  Company Number: B0634407A

PATIENT
  Age: 3 Year
  Sex: Male

DRUGS (1)
  1. CLAVAMOX [Suspect]
     Route: 048

REACTIONS (10)
  - EPSTEIN-BARR VIRUS TEST POSITIVE [None]
  - FACE OEDEMA [None]
  - INFECTIOUS MONONUCLEOSIS [None]
  - LYMPHADENOPATHY [None]
  - LYMPHOCYTE COUNT INCREASED [None]
  - LYMPHOCYTE MORPHOLOGY ABNORMAL [None]
  - PHARYNGEAL ERYTHEMA [None]
  - PYREXIA [None]
  - RASH [None]
  - WHITE BLOOD CELL COUNT INCREASED [None]
